FAERS Safety Report 21378159 (Version 1)
Quarter: 2022Q3

REPORT INFORMATION
  Report Type: Spontaneous
  Country: US (occurrence: US)
  Receive Date: 20220926
  Receipt Date: 20220926
  Transmission Date: 20221027
  Serious: No
  Sender: FDA-Public Use
  Company Number: US-BAUSCHBL-2022BNL000524

PATIENT
  Sex: Female

DRUGS (2)
  1. DORZOLAMIDE HYDROCHLORIDE [Suspect]
     Active Substance: DORZOLAMIDE HYDROCHLORIDE
     Indication: Product used for unknown indication
     Dosage: 2 DROPS PER DAY
     Route: 047
     Dates: start: 20220526, end: 20220731
  2. DORZOLAMIDE HYDROCHLORIDE [Suspect]
     Active Substance: DORZOLAMIDE HYDROCHLORIDE
     Dosage: 3 DROPS PER DAY
     Route: 047
     Dates: start: 20220801

REACTIONS (7)
  - Chromatopsia [Unknown]
  - Confusional state [Unknown]
  - Visual acuity reduced [Unknown]
  - Balance disorder [Unknown]
  - Visual impairment [Unknown]
  - Photophobia [Unknown]
  - Instillation site pain [Unknown]

NARRATIVE: CASE EVENT DATE: 20220801
